FAERS Safety Report 6976283-0 (Version None)
Quarter: 2010Q3

REPORT INFORMATION
  Report Type: 
  Country: None (occurrence: None)
  Receive Date: 20100910
  Receipt Date: 20100820
  Transmission Date: 20110219
  Serious: Yes (Life-Threatening, Hospitalization)
  Sender: FDA-Public Use
  Company Number: PL-ASTRAZENECA-2010SE42190

PATIENT
  Age: 32 Day
  Sex: Female
  Weight: 1.5 kg

DRUGS (7)
  1. MEROPENEM [Suspect]
     Indication: SEPSIS
     Dosage: 3 X 30 MG/24 H
     Route: 042
     Dates: start: 20100325, end: 20100408
  2. MEROPENEM [Suspect]
     Indication: PNEUMONIA
     Dosage: 3 X 30 MG/24 H
     Route: 042
     Dates: start: 20100325, end: 20100408
  3. ABELCET [Suspect]
     Indication: SYSTEMIC MYCOSIS
     Dosage: 5 MG/KG/24 H
     Route: 042
     Dates: start: 20100330, end: 20100419
  4. TARGOCID [Suspect]
     Indication: SEPSIS
     Dosage: 8 MG/24 H
     Route: 042
     Dates: start: 20100325, end: 20100408
  5. TARGOCID [Suspect]
     Indication: PNEUMONIA
     Dosage: 8 MG/24 H
     Route: 042
     Dates: start: 20100325, end: 20100408
  6. PERFALGAN [Suspect]
     Indication: SEPSIS
     Dosage: 3 X 7.5 MG/KG
     Route: 042
     Dates: start: 20100227, end: 20100408
  7. PERFALGAN [Suspect]
     Indication: PNEUMONIA
     Dosage: 3 X 7.5 MG/KG
     Route: 042
     Dates: start: 20100227, end: 20100408

REACTIONS (4)
  - CEREBROVASCULAR ACCIDENT [None]
  - CHOLESTASIS [None]
  - HAEMORRHAGIC DIATHESIS [None]
  - THROMBOCYTOPENIA [None]
